FAERS Safety Report 18995748 (Version 1)
Quarter: 2021Q1

REPORT INFORMATION
  Report Type: Spontaneous
  Country: US (occurrence: US)
  Receive Date: 20210310
  Receipt Date: 20210310
  Transmission Date: 20210420
  Serious: Yes (Hospitalization, Other)
  Sender: FDA-Public Use
  Company Number: US-ASTRAZENECA-2021A112214

PATIENT
  Age: 15036 Day
  Sex: Male
  Weight: 67.1 kg

DRUGS (12)
  1. ENTRESTO [Concomitant]
     Active Substance: SACUBITRIL\VALSARTAN
     Indication: CARDIAC DISORDER
     Dosage: 24/26 MG TWICE DAILY
  2. ASPIRIN. [Concomitant]
     Active Substance: ASPIRIN
     Indication: CARDIAC DISORDER
     Route: 048
  3. COENZYME Q10 [Concomitant]
     Active Substance: DIETARY SUPPLEMENT\UBIDECARENONE
     Indication: CARDIAC DISORDER
     Route: 048
  4. ROSUVASTATIN. [Suspect]
     Active Substance: ROSUVASTATIN
     Indication: CARDIAC DISORDER
     Route: 048
  5. BRILINTA [Suspect]
     Active Substance: TICAGRELOR
     Indication: CARDIAC DISORDER
     Route: 048
  6. SPIRONOLACTONE. [Concomitant]
     Active Substance: SPIRONOLACTONE
     Indication: CARDIAC DISORDER
     Dosage: 25.0MG UNKNOWN
     Route: 048
  7. FARXIGA [Suspect]
     Active Substance: DAPAGLIFLOZIN PROPANEDIOL
     Indication: MYOCARDIAL INFARCTION
     Route: 048
     Dates: start: 202102, end: 20210301
  8. METOPROLOL SUCCINATE. [Concomitant]
     Active Substance: METOPROLOL SUCCINATE
     Indication: CARDIAC DISORDER
     Route: 048
  9. DIGOXIN. [Concomitant]
     Active Substance: DIGOXIN
     Indication: CARDIAC DISORDER
     Route: 048
  10. KRILL OIL [Concomitant]
     Active Substance: DIETARY SUPPLEMENT\KRILL OIL
     Indication: CARDIAC DISORDER
     Route: 048
  11. VITAMIN D3 [Concomitant]
     Active Substance: CHOLECALCIFEROL
     Indication: CARDIAC DISORDER
     Dosage: 2000.0USP UNITS UNKNOWN
     Route: 048
  12. ALFUZOSIN [Concomitant]
     Active Substance: ALFUZOSIN
     Indication: PROSTATE INFECTION
     Route: 048

REACTIONS (17)
  - Dyspnoea [Unknown]
  - Intentional product misuse [Unknown]
  - Bundle branch block left [Unknown]
  - Heart rate irregular [Unknown]
  - Visual impairment [Unknown]
  - Cerebrovascular accident [Unknown]
  - Memory impairment [Unknown]
  - Cardiac dysfunction [Unknown]
  - Heart rate increased [Unknown]
  - Condition aggravated [Not Recovered/Not Resolved]
  - Myocardial infarction [Unknown]
  - Ejection fraction decreased [Unknown]
  - Loss of personal independence in daily activities [Unknown]
  - Prostatomegaly [Unknown]
  - Ventricular tachycardia [Unknown]
  - Heart injury [Unknown]
  - Asthenia [Unknown]

NARRATIVE: CASE EVENT DATE: 2013
